FAERS Safety Report 6933531-0 (Version None)
Quarter: 2010Q3

REPORT INFORMATION
  Report Type: 
  Country: None (occurrence: None)
  Receive Date: 20100820
  Receipt Date: 20100818
  Transmission Date: 20110219
  Serious: Yes (Death)
  Sender: FDA-Public Use
  Company Number: JP-SANOFI-AVENTIS-200911121JP

PATIENT
  Age: 79 Year
  Sex: Male

DRUGS (4)
  1. DOCETAXEL [Suspect]
     Dosage: DAY2
     Route: 041
     Dates: start: 20050917, end: 20061202
  2. ESTRAMUSTINE [Concomitant]
     Dosage: FIRST 5 DAYS OF EACH CYCLE
  3. HYDROCORTISONE [Concomitant]
     Dosage: 30 MG IN THE MORNING AND 10 MG IN THE EVENING
  4. DEXAMETHASONE [Concomitant]
     Dosage: DAY 1 TO 3

REACTIONS (1)
  - INTERSTITIAL LUNG DISEASE [None]
